FAERS Safety Report 7672714-1 (Version None)
Quarter: 2011Q3

REPORT INFORMATION
  Report Type: 
  Country: None (occurrence: None)
  Receive Date: 20110804
  Receipt Date: 20110721
  Transmission Date: 20111222
  Serious: Yes (Hospitalization)
  Sender: FDA-Public Use
  Company Number: 2011AP001030

PATIENT
  Age: 57 Year
  Sex: Female

DRUGS (13)
  1. LOXAPINE HCL [Concomitant]
  2. PANTOPRAZOLE [Concomitant]
  3. RISPERIDONE [Concomitant]
  4. PROCYCLIDINE HYDROCHLORIDE 2MG TAB [Concomitant]
  5. DIVALPROEX SODIUM [Suspect]
     Indication: SCHIZOAFFECTIVE DISORDER
     Dosage: 500 MG, HS, PO, 250 MG, BID, PO; 250 MG, AM, PO;
     Route: 048
     Dates: start: 20110509, end: 20110517
  6. DIVALPROEX SODIUM [Suspect]
     Indication: SCHIZOAFFECTIVE DISORDER
     Dosage: 500 MG, HS, PO, 250 MG, BID, PO; 250 MG, AM, PO;
     Route: 048
     Dates: start: 20110509, end: 20110517
  7. DIVALPROEX SODIUM [Suspect]
     Indication: SCHIZOAFFECTIVE DISORDER
     Dosage: 500 MG, HS, PO, 250 MG, BID, PO; 250 MG, AM, PO;
     Route: 048
     Dates: start: 20110331, end: 20110508
  8. CITALOPRAM HYDROBROMIDE [Concomitant]
  9. SERETIDE [Concomitant]
  10. PROPRANOLOL [Concomitant]
  11. CLOZAPINE [Suspect]
     Indication: SCHIZOAFFECTIVE DISORDER
     Dosage: 250 MG, QD, PO
     Route: 048
     Dates: start: 20110408, end: 20110518
  12. SIMVASTATIN [Suspect]
     Indication: HYPERCHOLESTEROLAEMIA
     Dosage: 40 MG TAB, QD,PO
     Route: 048
     Dates: start: 20110329, end: 20110519
  13. BENZTROPINE MESYLATE [Concomitant]

REACTIONS (12)
  - CLOSTRIDIUM DIFFICILE COLITIS [None]
  - BLOOD ALKALINE PHOSPHATASE INCREASED [None]
  - NEUTROPENIA [None]
  - METABOLIC DISORDER [None]
  - GAMMA-GLUTAMYLTRANSFERASE INCREASED [None]
  - GRAND MAL CONVULSION [None]
  - BLOOD ALBUMIN DECREASED [None]
  - HEPATOTOXICITY [None]
  - NAUSEA [None]
  - ASPARTATE AMINOTRANSFERASE INCREASED [None]
  - WHITE BLOOD CELL COUNT INCREASED [None]
  - DECREASED APPETITE [None]
